FAERS Safety Report 14917804 (Version 2)
Quarter: 2018Q2

REPORT INFORMATION
  Report Type: Report from Study
  Country: FR (occurrence: FR)
  Receive Date: 20180521
  Receipt Date: 20180523
  Transmission Date: 20180711
  Serious: Yes (Hospitalization)
  Sender: FDA-Public Use
  Company Number: FR-ROCHE-2124977

PATIENT
  Age: 68 Year
  Sex: Male

DRUGS (2)
  1. RO 7009789 (CD40 AGONIST) [Suspect]
     Active Substance: INVESTIGATIONAL PRODUCT
     Indication: NEOPLASM
     Route: 058
     Dates: start: 20180406, end: 20180406
  2. ATEZOLIZUMAB. [Suspect]
     Active Substance: ATEZOLIZUMAB
     Indication: NEOPLASM
     Dosage: ON 26/APR/2018, HE RECEIVED HIS MOST RECENT DOSE OF ATEZOLIZUMAB PRIOR TO THE ONSET OF THE ADVERSE E
     Route: 042
     Dates: start: 20180405

REACTIONS (2)
  - Bronchitis [Not Recovered/Not Resolved]
  - Fatigue [Not Recovered/Not Resolved]

NARRATIVE: CASE EVENT DATE: 20180512
